FAERS Safety Report 12756897 (Version 1)
Quarter: 2016Q3

REPORT INFORMATION
  Report Type: Spontaneous
  Country: US (occurrence: US)
  Receive Date: 20160917
  Receipt Date: 20160917
  Transmission Date: 20161109
  Serious: No
  Sender: FDA-Public Use
  Company Number: US-LYNE LABORATORIES INC.-1057412

PATIENT
  Age: 6 Year
  Sex: Female
  Weight: 19.09 kg

DRUGS (1)
  1. LEVOCARNITINE. [Suspect]
     Active Substance: LEVOCARNITINE
     Indication: CARNITINE ABNORMAL
     Route: 048
     Dates: start: 20160501, end: 20160503

REACTIONS (1)
  - Retching [Unknown]

NARRATIVE: CASE EVENT DATE: 20160505
